FAERS Safety Report 8549659-8 (Version None)
Quarter: 2012Q3

REPORT INFORMATION
  Report Type: 
  Country: None (occurrence: None)
  Receive Date: 20120730
  Receipt Date: 20120719
  Transmission Date: 20120928
  Serious: Yes (Hospitalization)
  Sender: FDA-Public Use
  Company Number: BE-TEVA-331461ISR

PATIENT
  Age: 66 Year
  Sex: Female

DRUGS (26)
  1. FLUOROURACIL [Suspect]
     Indication: METASTATIC GASTRIC CANCER
     Dosage: CURRENT CYCLE 1, 800 MG/M^2/DAY
     Route: 041
     Dates: start: 20120305, end: 20120310
  2. OLAMINE (PIROCTONE ETHANOLAMINE) [Concomitant]
     Indication: DANDRUFF
     Dates: start: 20101208
  3. MAGNESIUM SULFATE [Concomitant]
     Indication: HYPOMAGNESAEMIA
     Dates: start: 20120323, end: 20120326
  4. FLUOROURACIL [Suspect]
     Route: 041
     Dates: start: 20120326
  5. NEUROBION [Concomitant]
     Indication: GASTRECTOMY
     Dates: start: 20100330
  6. BAREXAL [Concomitant]
     Indication: DIARRHOEA
     Dates: start: 20120305
  7. BICARBONATE BUCCAL = MOUTH WASH [Concomitant]
     Indication: MUCOSAL INFLAMMATION
     Route: 002
     Dates: start: 20120313
  8. MORPHINE SULFATE [Concomitant]
     Indication: PAIN
     Dates: start: 20120313
  9. CISPLATIN [Suspect]
     Route: 041
     Dates: start: 20120326
  10. ATACAND [Concomitant]
     Indication: HYPERTENSION
     Dates: start: 20050613
  11. ORTHO-GYNEST [Concomitant]
     Indication: OOPHORECTOMY
     Dates: start: 20110307
  12. ZANTAC [Concomitant]
     Indication: DYSPEPSIA
     Dates: start: 20120312, end: 20120313
  13. SYNGEL [Concomitant]
     Indication: ABDOMINAL PAIN UPPER
     Dates: start: 20120314
  14. SOFTENE [Concomitant]
     Indication: CONSTIPATION
     Dates: start: 20120315
  15. MOVIPREP [Concomitant]
     Indication: CONSTIPATION
     Dates: start: 20120313
  16. TRAMADOL HCL [Concomitant]
     Dates: start: 20120312, end: 20120312
  17. CISPLATIN [Suspect]
     Indication: METASTATIC GASTRIC CANCER
     Dosage: CURRENT CYCLE 1, 80 MG/M^2
     Route: 041
     Dates: start: 20120305, end: 20120305
  18. LITICAN [Concomitant]
     Indication: NAUSEA
     Dates: start: 20120311
  19. ENOXAPARIN SODIUM [Concomitant]
     Indication: THROMBOSIS PROPHYLAXIS
     Dates: start: 20120312, end: 20120313
  20. DIFLUCAN [Concomitant]
     Indication: PROPHYLAXIS
     Dates: start: 20120312, end: 20120327
  21. TRAMADOL HCL [Concomitant]
     Indication: ABDOMINAL PAIN
     Dates: start: 20120312, end: 20120314
  22. MOTILIUM [Concomitant]
     Indication: NAUSEA
     Dates: start: 20120311
  23. IMODIUM [Concomitant]
     Indication: DIARRHOEA
     Dates: start: 20120312, end: 20120313
  24. ACETAMINOPHEN [Concomitant]
     Indication: HEADACHE
     Dates: start: 20120309
  25. BLOOD TRANSFUSION [Concomitant]
     Indication: ANAEMIA
     Dates: start: 20120320, end: 20120321
  26. VITAMIN-MINERAL COMPOUND TAB [Concomitant]
     Indication: PROPHYLAXIS

REACTIONS (3)
  - HYPOKALAEMIA [None]
  - FEBRILE NEUTROPENIA [None]
  - DECREASED APPETITE [None]
